FAERS Safety Report 8658464 (Version 4)
Quarter: 2014Q1

REPORT INFORMATION
  Report Type: Spontaneous
  Country: US (occurrence: None)
  Receive Date: 20120625
  Receipt Date: 20140318
  Transmission Date: 20141002
  Serious: Yes (Other)
  Sender: FDA-Public Use
  Company Number: JPI-P-021951

PATIENT
  Age: 62 Year
  Sex: Female
  Weight: 52.6 kg

DRUGS (23)
  1. XYREM [Suspect]
     Indication: NARCOLEPSY
     Dosage: ORAL, 8 GM (4 GM, 2 IN 1 D), ORAL
     Route: 048
     Dates: start: 200805
  2. OCULAR LUBRICANT [Concomitant]
  3. BEPOTASTINE BESILATE OPHTHALMIC SOLUTION [Concomitant]
  4. FLUTICASONE FUROATE [Concomitant]
  5. ATORVASTATIN CALCIUM [Concomitant]
  6. DILTIAZEM HYDROCHLORIDE [Concomitant]
  7. FOLIC ACID [Concomitant]
  8. HYDROCHLOROTHIAZIDE AND TRIAMTERENE [Concomitant]
  9. CLOPIDOGREL BISULFATE [Concomitant]
  10. PILOCARPINE HYDROCHLORIDE [Concomitant]
  11. ACETYLSALICYLIC ACID [Concomitant]
  12. TIOTROPIUM BROMIDE [Concomitant]
  13. ALBUTEROL [Concomitant]
  14. MECLIZINE [Concomitant]
  15. OXYCODONE AND ACETAMINOPHEN [Concomitant]
  16. CARISOPRODOL [Concomitant]
  17. CLONAZEPAM [Concomitant]
  18. VITAMIN D [Concomitant]
  19. FISH OIL [Concomitant]
  20. CALCIUM WITH VITAMIN D [Concomitant]
  21. MULTIVITAMINS [Concomitant]
  22. MEGACE [Concomitant]
  23. PRAVASTATIN [Concomitant]

REACTIONS (25)
  - Myocardial infarction [None]
  - Pulmonary fibrosis [None]
  - Multiple allergies [None]
  - Condition aggravated [None]
  - Weight decreased [None]
  - Anxiety [None]
  - Dry eye [None]
  - Lip dry [None]
  - Eye irritation [None]
  - Diarrhoea [None]
  - Asthenia [None]
  - Dizziness [None]
  - Nervousness [None]
  - Fatigue [None]
  - Nausea [None]
  - Decreased appetite [None]
  - Somnolence [None]
  - Middle insomnia [None]
  - Initial insomnia [None]
  - Agitation [None]
  - Alopecia [None]
  - Respiratory tract congestion [None]
  - Dyspnoea [None]
  - Coronary artery disease [None]
  - Hypersensitivity [None]
